FAERS Safety Report 13084607 (Version 2)
Quarter: 2017Q3

REPORT INFORMATION
  Report Type: Spontaneous
  Country: CO (occurrence: CO)
  Receive Date: 20170104
  Receipt Date: 20170809
  Transmission Date: 20171127
  Serious: Yes (Other)
  Sender: FDA-Public Use
  Company Number: CO-PFIZER INC-2016602623

PATIENT
  Age: 47 Year
  Sex: Female

DRUGS (5)
  1. METHOTREXATE. [Suspect]
     Active Substance: METHOTREXATE
     Indication: RHEUMATOID ARTHRITIS
     Dosage: 4 DF, WEEKLY (4 DF ON SATURDAY, AND 4 DF ON SUNDAY)
     Route: 048
     Dates: start: 2015
  2. NAPROXEN. [Concomitant]
     Active Substance: NAPROXEN
     Dosage: UNK
  3. ACETAMINOPHEN. [Concomitant]
     Active Substance: ACETAMINOPHEN
     Dosage: UNK
  4. FOLIC ACID. [Concomitant]
     Active Substance: FOLIC ACID
     Dosage: UNK
  5. ESOMEPRAZOLE [Concomitant]
     Active Substance: ESOMEPRAZOLE
     Dosage: UNK

REACTIONS (5)
  - Pain [Not Recovered/Not Resolved]
  - Inflammation [Not Recovered/Not Resolved]
  - Drug ineffective [Not Recovered/Not Resolved]
  - Gait inability [Not Recovered/Not Resolved]
  - Fluid retention [Not Recovered/Not Resolved]
